FAERS Safety Report 5216174-9 (Version None)
Quarter: 2007Q1

REPORT INFORMATION
  Report Type: 
  Country: None (occurrence: None)
  Receive Date: 20070123
  Receipt Date: 20070110
  Transmission Date: 20070707
  Serious: Yes (Hospitalization)
  Sender: FDA-Public Use
  Company Number: AU-ELI_LILLY_AND_COMPANY-AU200610000323

PATIENT
  Age: 15 Year
  Sex: Female

DRUGS (4)
  1. ZOLOFT [Concomitant]
     Dosage: 50 MG, EACH MORNING
     Dates: end: 20060101
  2. CATAPRES [Concomitant]
     Dosage: 100 UG, EACH EVENING
  3. STRATTERA [Suspect]
     Indication: MENTAL IMPAIRMENT
     Dosage: 10 MG, EACH MORNING
     Dates: start: 20051201
  4. STRATTERA [Suspect]
     Dosage: 40 MG, EACH MORNING

REACTIONS (2)
  - ABNORMAL BEHAVIOUR [None]
  - PANCREATITIS [None]
